FAERS Safety Report 7028022-5 (Version None)
Quarter: 2010Q4

REPORT INFORMATION
  Report Type: 
  Country: None (occurrence: None)
  Receive Date: 20101005
  Receipt Date: 20101001
  Transmission Date: 20110411
  Serious: Yes (Death)
  Sender: FDA-Public Use
  Company Number: US-ASTRAZENECA-2010SE38089

PATIENT
  Age: 22398 Day
  Sex: Female
  Weight: 73.5 kg

DRUGS (3)
  1. FASLODEX [Suspect]
     Route: 030
     Dates: start: 20100525
  2. FASLODEX [Suspect]
     Route: 030
     Dates: start: 20100610
  3. FASLODEX [Suspect]
     Route: 030
     Dates: start: 20100623

REACTIONS (4)
  - CELLULITIS [None]
  - CONTUSION [None]
  - DEATH [None]
  - INJECTION SITE ERYTHEMA [None]
